FAERS Safety Report 18545121 (Version 1)
Quarter: 2020Q4

REPORT INFORMATION
  Report Type: Spontaneous
  Country: CA (occurrence: CA)
  Receive Date: 20201125
  Receipt Date: 20201125
  Transmission Date: 20210114
  Serious: Yes (Death)
  Sender: FDA-Public Use
  Company Number: CA-PFIZER INC-2020363055

PATIENT
  Age: 79 Year
  Sex: Female
  Weight: 79.3 kg

DRUGS (12)
  1. IBRANCE [Suspect]
     Active Substance: PALBOCICLIB
     Indication: BREAST CANCER METASTATIC
     Dosage: 125 MG, 1X/DAY (FOR 21DAYS IN A ROW, STOP FOR 7DAYS)
     Route: 048
     Dates: start: 20200806
  2. APO CARVEDILOL [Concomitant]
     Dosage: 1 DF, 2X/DAY
  3. PREDNISONE TEVA [Concomitant]
     Active Substance: PREDNISONE
     Dosage: 1 TAB 12 HOURS PRE-INJECTION, 1 TAB 7 HOURS PRE-INJECTION, 1 TAB 1 HOUR PRE-INJECTION
  4. FORXIGA [Concomitant]
     Active Substance: DAPAGLIFLOZIN
     Dosage: 1 DF, 1X/DAY
  5. EXEMESTANE TEVA [Concomitant]
     Active Substance: EXEMESTANE
     Dosage: 1 DF, 1X/DAY
  6. ACT METFORMIN [Concomitant]
     Active Substance: METFORMIN HYDROCHLORIDE
     Dosage: 1 DF, 2X/DAY AFTER MEALS
  7. LETROZOLE. [Concomitant]
     Active Substance: LETROZOLE
     Indication: BREAST CANCER METASTATIC
     Dosage: UNK
  8. APO CLOPIDOGREL [Concomitant]
     Dosage: 1 DF, DAILY
  9. IBRANCE [Suspect]
     Active Substance: PALBOCICLIB
     Dosage: 100 MG, 1X/DAY(FOR 21DAYS IN A ROW, STOP FOR 7DAYS)
     Route: 048
     Dates: start: 20200915
  10. ENTRESTO [Concomitant]
     Active Substance: SACUBITRIL\VALSARTAN
     Dosage: 1 DF (48.6 MG/51.4MG), 2X/DAY
  11. APO ROSUVASTATIN [Concomitant]
     Active Substance: ROSUVASTATIN CALCIUM
     Dosage: 1 DF, 1X/DAY
  12. APO FUROSEMIDE [Concomitant]
     Active Substance: FUROSEMIDE
     Dosage: 1 DF, 1X/DAY

REACTIONS (2)
  - Death [Fatal]
  - Blood potassium decreased [Unknown]

NARRATIVE: CASE EVENT DATE: 20201118
